FAERS Safety Report 5999198-3 (Version None)
Quarter: 2008Q4

REPORT INFORMATION
  Report Type: 
  Country: None (occurrence: None)
  Receive Date: 20081215
  Receipt Date: 20081111
  Transmission Date: 20090506
  Serious: No
  Sender: FDA-Public Use
  Company Number: US-BAYER-200838457NA

PATIENT
  Sex: Female

DRUGS (1)
  1. CLIMARA [Suspect]
     Indication: ARTIFICIAL MENOPAUSE
     Route: 062

REACTIONS (3)
  - DIZZINESS [None]
  - MUSCLE SPASMS [None]
  - MYALGIA [None]
